FAERS Safety Report 8515170-3 (Version None)
Quarter: 2012Q3

REPORT INFORMATION
  Report Type: 
  Country: None (occurrence: None)
  Receive Date: 20120717
  Receipt Date: 20120711
  Transmission Date: 20120928
  Serious: Yes (Other)
  Sender: FDA-Public Use
  Company Number: CA-GLAXOSMITHKLINE-A0984142A

PATIENT
  Sex: Female
  Weight: 67.3 kg

DRUGS (3)
  1. HEART MEDICATION [Concomitant]
  2. VENTOLIN [Concomitant]
     Route: 065
  3. ADVAIR DISKUS 100/50 [Suspect]
     Indication: ASTHMA
     Dosage: 1PUFF PER DAY
     Route: 055

REACTIONS (3)
  - OROPHARYNGEAL PAIN [None]
  - ASTHMA [None]
  - DYSPHONIA [None]
